FAERS Safety Report 9135816 (Version 3)
Quarter: 2013Q2

REPORT INFORMATION
  Report Type: Report from Study
  Country: CA (occurrence: CA)
  Receive Date: 20130304
  Receipt Date: 20130605
  Transmission Date: 20140414
  Serious: Yes (Hospitalization)
  Sender: FDA-Public Use
  Company Number: CA-PFIZER INC-2012251442

PATIENT
  Age: 70 Year
  Sex: Female
  Weight: 50 kg

DRUGS (15)
  1. ARTHROTEC [Suspect]
     Dosage: 50 MG, UNK
     Route: 065
     Dates: start: 20120312, end: 20120324
  2. PANTOLOC [Suspect]
     Indication: GASTROINTESTINAL HAEMORRHAGE
     Dosage: 40 MG, 2X/DAY
     Route: 065
     Dates: start: 20120324, end: 20120327
  3. BLINDED THERAPY [Suspect]
     Indication: CARDIOVASCULAR EVENT PROPHYLAXIS
     Dosage: UNK, 1 IN 4 WK
     Route: 042
     Dates: start: 20110829
  4. DIAMICRON MR [Concomitant]
     Dosage: 30 MG, UNK
     Dates: start: 20110903
  5. SYNTHROID [Concomitant]
     Dosage: 0.88 MG, UNK
     Dates: start: 1980
  6. SYNTHROID [Concomitant]
     Dosage: 0.1 MG, UNK
     Dates: start: 1980
  7. EZETROL [Concomitant]
     Dosage: 20 MG, UNK
     Dates: start: 2001
  8. NORVASC [Concomitant]
     Dosage: 5 MG, UNK
     Dates: start: 20110902
  9. VITAMIN D [Concomitant]
     Dosage: 10000 IU, UNK
     Dates: start: 2001
  10. ASA [Concomitant]
     Dosage: 81 MG, UNK
     Dates: start: 20110830, end: 20120324
  11. FERROUS GLUCONATE [Concomitant]
     Dosage: 300 MG, UNK
     Dates: start: 201110, end: 20121116
  12. METOPROLOL [Concomitant]
     Dosage: 50 MG, UNK
     Dates: start: 20110904
  13. ALDACTONE [Concomitant]
     Dosage: 25 MG, UNK
     Dates: start: 2001
  14. ACTONEL [Concomitant]
     Dosage: 35 MG, UNK
     Dates: start: 20110904, end: 20120327
  15. CALCIUM [Concomitant]
     Dosage: UNK

REACTIONS (1)
  - Gastrointestinal haemorrhage [Recovered/Resolved]
